FAERS Safety Report 6914123-6 (Version None)
Quarter: 2010Q3

REPORT INFORMATION
  Report Type: 
  Country: None (occurrence: None)
  Receive Date: 20100809
  Receipt Date: 20100804
  Transmission Date: 20110219
  Serious: Yes (Hospitalization)
  Sender: FDA-Public Use
  Company Number: AR-BRISTOL-MYERS SQUIBB COMPANY-15225642

PATIENT
  Age: 38 Year
  Sex: Male

DRUGS (5)
  1. REYATAZ [Suspect]
     Dates: start: 20100701
  2. TRUVADA [Suspect]
     Dates: start: 20100701
  3. RITONAVIR [Suspect]
     Dates: start: 20100701
  4. GABAPENTIN [Concomitant]
  5. AMITRIPTYLINE HYDROCHLORIDE [Concomitant]

REACTIONS (2)
  - PERIPHERAL ISCHAEMIA [None]
  - POLYNEUROPATHY [None]
